FAERS Safety Report 4404397-8 (Version None)
Quarter: 2004Q3

REPORT INFORMATION
  Report Type: 
  Country: None (occurrence: None)
  Receive Date: 20040720
  Receipt Date: 20040706
  Transmission Date: 20050211
  Serious: Yes (Hospitalization)
  Sender: FDA-Public Use
  Company Number: 198406

PATIENT
  Age: 43 Year
  Sex: Female
  Weight: 220 kg

DRUGS (2)
  1. AVONEX [Suspect]
     Indication: MULTIPLE SCLEROSIS
     Dosage: 30 MCG QW IM
     Route: 030
     Dates: start: 20020501, end: 20030101
  2. AVONEX [Suspect]
     Indication: MULTIPLE SCLEROSIS
     Dosage: 30 MCG QW IM
     Route: 030
     Dates: start: 20020501, end: 20030101

REACTIONS (12)
  - ASTHENIA [None]
  - BLOOD CHOLESTEROL INCREASED [None]
  - CONFUSIONAL STATE [None]
  - DIFFICULTY IN WALKING [None]
  - FALL [None]
  - FATIGUE [None]
  - HYPERTENSION [None]
  - MEMORY IMPAIRMENT [None]
  - MULTIPLE SCLEROSIS [None]
  - MUSCULAR WEAKNESS [None]
  - TREMOR [None]
  - VISION BLURRED [None]
